FAERS Safety Report 5772187-X (Version None)
Quarter: 2008Q2

REPORT INFORMATION
  Report Type: 
  Country: None (occurrence: None)
  Receive Date: 20080611
  Receipt Date: 20080606
  Transmission Date: 20081010
  Serious: Yes (Other)
  Sender: FDA-Public Use
  Company Number: SPV1-2008-01239

PATIENT
  Sex: Male

DRUGS (1)
  1. FOSRENOL [Suspect]
     Dosage: 750 MG, 3X/DAY:TID
     Dates: end: 20080604

REACTIONS (1)
  - DUODENAL ULCER HAEMORRHAGE [None]
